FAERS Safety Report 8101759-2 (Version None)
Quarter: 2012Q1

REPORT INFORMATION
  Report Type: 
  Country: None (occurrence: None)
  Receive Date: 20120131
  Receipt Date: 20120123
  Transmission Date: 20120608
  Serious: Yes (Hospitalization)
  Sender: FDA-Public Use
  Company Number: PHFR2011GB006825

PATIENT
  Sex: Female

DRUGS (4)
  1. PROCHLORPERAZINE [Concomitant]
  2. MIRTAZAPINE [Concomitant]
     Dosage: UNK
  3. CLOZARIL [Suspect]
     Indication: SCHIZOPHRENIA
     Route: 048
     Dates: start: 20030217
  4. ACETAMINOPHEN AND CODEINE PHOSPHATE [Concomitant]
     Dosage: UNK

REACTIONS (6)
  - COLONIC OBSTRUCTION [None]
  - NEUTROPHIL COUNT INCREASED [None]
  - ABDOMINAL PAIN UPPER [None]
  - NAUSEA [None]
  - WHITE BLOOD CELL COUNT INCREASED [None]
  - VOMITING [None]
